FAERS Safety Report 4865009-2 (Version None)
Quarter: 2005Q4

REPORT INFORMATION
  Report Type: 
  Country: None (occurrence: None)
  Receive Date: 20051223
  Receipt Date: 20051212
  Transmission Date: 20060501
  Serious: Yes (Hospitalization, Other)
  Sender: FDA-Public Use
  Company Number: PHHO2005JP19580

PATIENT
  Age: 88 Year
  Sex: Male

DRUGS (6)
  1. DIOVAN [Suspect]
     Indication: HYPERTENSION
     Dosage: 80 MG, QD
     Route: 048
     Dates: start: 20021127, end: 20050703
  2. TAKEPRON [Concomitant]
     Indication: REFLUX OESOPHAGITIS
     Dosage: 15 MG, UNK
     Route: 048
     Dates: start: 20021008, end: 20050703
  3. URSO [Concomitant]
     Indication: CHOLELITHIASIS
     Dosage: 2 DF, UNK
     Route: 048
     Dates: start: 20021008, end: 20050703
  4. MUCOSTA [Concomitant]
     Indication: GASTRITIS
     Dosage: 2 DF, UNK
     Route: 048
     Dates: start: 20041008, end: 20050703
  5. NORVASC [Concomitant]
     Indication: HYPERTENSION
     Dosage: 2.5 MG, UNK
     Dates: start: 20040705
  6. NORVASC [Concomitant]
     Dosage: 5 MG, UNK
     Route: 048

REACTIONS (1)
  - CEREBRAL INFARCTION [None]
